FAERS Safety Report 6307492-1 (Version None)
Quarter: 2009Q3

REPORT INFORMATION
  Report Type: 
  Country: None (occurrence: None)
  Receive Date: 20090813
  Receipt Date: 20090810
  Transmission Date: 20100115
  Serious: Yes (Other)
  Sender: FDA-Public Use
  Company Number: US-BRISTOL-MYERS SQUIBB COMPANY-14716906

PATIENT
  Age: 67 Year
  Sex: Female

DRUGS (4)
  1. ABILIFY [Suspect]
     Indication: DEPRESSION
     Dosage: INITIAL DOSE AT 1MG DOSE INCREASED TO 2MG IN MID JUN09
     Route: 048
     Dates: start: 20090602
  2. DEPAKOTE [Suspect]
     Dosage: 1500 MG FOR 1 YR DECREASED TO 1000MG AND THEN INCREASED TO 1500MG
  3. PAXIL [Concomitant]
  4. CLONAZEPAM [Concomitant]

REACTIONS (2)
  - DECREASED APPETITE [None]
  - LIPASE INCREASED [None]
